FAERS Safety Report 5849614-2 (Version None)
Quarter: 2008Q3

REPORT INFORMATION
  Report Type: 
  Country: None (occurrence: None)
  Receive Date: 20080819
  Receipt Date: 20080811
  Transmission Date: 20090109
  Serious: Yes (Disabling)
  Sender: FDA-Public Use
  Company Number: GB-ROCHE-580274

PATIENT
  Sex: Female

DRUGS (2)
  1. CAPECITABINE [Suspect]
     Indication: BREAST CANCER
     Route: 048
     Dates: start: 20080411, end: 20080615
  2. EPIRUBICIN [Concomitant]
     Indication: BREAST CANCER
     Route: 048
     Dates: start: 20070119, end: 20070319

REACTIONS (3)
  - MOBILITY DECREASED [None]
  - PLANTAR FASCIITIS [None]
  - QUALITY OF LIFE DECREASED [None]
